FAERS Safety Report 20096676 (Version 1)
Quarter: 2021Q4

REPORT INFORMATION
  Report Type: Spontaneous
  Country: US (occurrence: None)
  Receive Date: 20211120
  Receipt Date: 20211120
  Transmission Date: 20220304
  Serious: Yes (Other)
  Sender: FDA-Public Use
  Company Number: None

PATIENT
  Age: 9 Year
  Sex: Female

DRUGS (1)
  1. CONCERTA [Suspect]
     Active Substance: METHYLPHENIDATE HYDROCHLORIDE
     Indication: Attention deficit hyperactivity disorder
     Dosage: OTHER QUANTITY : 1 CAPSULE(S);?
     Route: 048
     Dates: start: 20210929, end: 20211120

REACTIONS (5)
  - Mood swings [None]
  - Aggression [None]
  - Suicidal ideation [None]
  - Feeling abnormal [None]
  - Self-injurious ideation [None]

NARRATIVE: CASE EVENT DATE: 20211120
